FAERS Safety Report 10584735 (Version 2)
Quarter: 2015Q1

REPORT INFORMATION
  Report Type: Spontaneous
  Country: US (occurrence: None)
  Receive Date: 20141112
  Receipt Date: 20150227
  Transmission Date: 20150720
  Serious: Yes (Hospitalization, Other)
  Sender: FDA-Public Use
  Company Number: ADR-2014-01605

PATIENT
  Age: 59 Year
  Sex: Male

DRUGS (15)
  1. CITALOPRAM [Suspect]
     Active Substance: CITALOPRAM HYDROBROMIDE
  2. BENZONATATE. [Suspect]
     Active Substance: BENZONATATE
  3. PANTOPRAZOLE [Suspect]
     Active Substance: PANTOPRAZOLE SODIUM
  4. ALLEGRA [Suspect]
     Active Substance: FEXOFENADINE HYDROCHLORIDE
  5. BACLOFEN INTRATHECAL [Suspect]
     Active Substance: BACLOFEN
     Indication: PAIN
  6. SUFENTANIL [Suspect]
     Active Substance: SUFENTANIL
  7. CLONIDINE. [Suspect]
     Active Substance: CLONIDINE
  8. BACLOFEN. [Suspect]
     Active Substance: BACLOFEN
  9. LOSARTAN [Suspect]
     Active Substance: LOSARTAN
  10. METFORMIN [Suspect]
     Active Substance: METFORMIN HYDROCHLORIDE
  11. PRAVASTATIN [Suspect]
     Active Substance: PRAVASTATIN\PRAVASTATIN SODIUM
  12. BUPIVACAINE INTRATHECAL [Suspect]
     Active Substance: BUPIVACAINE
  13. FLUTICASONE [Suspect]
     Active Substance: FLUTICASONE\FLUTICASONE PROPIONATE
  14. VICTOZA [Suspect]
     Active Substance: LIRAGLUTIDE
  15. FENOFIBRATE. [Suspect]
     Active Substance: FENOFIBRATE

REACTIONS (10)
  - Device connection issue [None]
  - Withdrawal syndrome [None]
  - Back pain [None]
  - Radicular pain [None]
  - Device malfunction [None]
  - Feeling cold [None]
  - Post laminectomy syndrome [None]
  - Device breakage [None]
  - Tremor [None]
  - Underdose [None]
